FAERS Safety Report 13582137 (Version 2)
Quarter: 2017Q3

REPORT INFORMATION
  Report Type: Spontaneous
  Country: FR (occurrence: FR)
  Receive Date: 20170525
  Receipt Date: 20170811
  Transmission Date: 20171127
  Serious: Yes (Hospitalization, Other)
  Sender: FDA-Public Use
  Company Number: FR-JNJFOC-20170523515

PATIENT
  Age: 66 Year
  Sex: Male

DRUGS (1)
  1. XARELTO [Suspect]
     Active Substance: RIVAROXABAN
     Indication: ATRIAL FIBRILLATION
     Route: 048
     Dates: start: 201502, end: 201609

REACTIONS (4)
  - Intermittent claudication [Unknown]
  - Peripheral artery thrombosis [Unknown]
  - Drug ineffective [Unknown]
  - Thrombosis [Unknown]

NARRATIVE: CASE EVENT DATE: 201608
